FAERS Safety Report 7342768-0 (Version None)
Quarter: 2011Q1

REPORT INFORMATION
  Report Type: 
  Country: None (occurrence: None)
  Receive Date: 20110310
  Receipt Date: 20110227
  Transmission Date: 20110831
  Serious: Yes (Other)
  Sender: FDA-Public Use
  Company Number: GB-BAYER-2011-011264

PATIENT
  Sex: Female

DRUGS (1)
  1. INTERFERON BETA-1B [Suspect]
     Indication: MULTIPLE SCLEROSIS
     Dosage: UNK UNK, QOD
     Route: 058

REACTIONS (6)
  - MUSCULAR WEAKNESS [None]
  - CONFUSIONAL STATE [None]
  - SPEECH DISORDER [None]
  - BALANCE DISORDER [None]
  - AMNESIA [None]
  - MULTIPLE SCLEROSIS RELAPSE [None]
